FAERS Safety Report 23784529 (Version 3)
Quarter: 2024Q2

REPORT INFORMATION
  Report Type: Spontaneous
  Country: CN (occurrence: None)
  Receive Date: 20240425
  Receipt Date: 20240519
  Transmission Date: 20240716
  Serious: Yes (Death, Other)
  Sender: FDA-Public Use
  Company Number: 2024A094687

PATIENT
  Age: 73 Year
  Sex: Male

DRUGS (1)
  1. NEXIUM I.V. [Suspect]
     Active Substance: ESOMEPRAZOLE SODIUM
     Indication: Upper gastrointestinal haemorrhage
     Route: 042

REACTIONS (10)
  - Gastrointestinal haemorrhage [Fatal]
  - Abdominal distension [Fatal]
  - Flatulence [Fatal]
  - Malaise [Fatal]
  - COVID-19 [Fatal]
  - Hepatic rupture [Fatal]
  - Anaemia [Unknown]
  - Abdominal pain [Unknown]
  - Oedema peripheral [Unknown]
  - Chromaturia [Unknown]
